FAERS Safety Report 13490107 (Version 4)
Quarter: 2017Q4

REPORT INFORMATION
  Report Type: Spontaneous
  Country: US (occurrence: US)
  Receive Date: 20170427
  Receipt Date: 20171116
  Transmission Date: 20180320
  Serious: Yes (Other)
  Sender: FDA-Public Use
  Company Number: US-WEST-WARD PHARMACEUTICALS CORP.-US-H14001-17-01270

PATIENT
  Age: 18 Year
  Sex: Female

DRUGS (4)
  1. OXCARBAZEPINE. [Interacting]
     Active Substance: OXCARBAZEPINE
     Indication: SEIZURE
  2. ONDANSETRON [Interacting]
     Active Substance: ONDANSETRON
     Indication: VOMITING
     Dates: start: 20170309, end: 201703
  3. ONDANSETRON [Suspect]
     Active Substance: ONDANSETRON
     Indication: VOMITING
     Route: 042
     Dates: start: 20170309
  4. PHENOBARBITAL. [Suspect]
     Active Substance: PHENOBARBITAL
     Indication: SEIZURE

REACTIONS (11)
  - Visual impairment [Unknown]
  - Nervous system disorder [Not Recovered/Not Resolved]
  - Muscle tightness [Not Recovered/Not Resolved]
  - Eye pain [Unknown]
  - Heart rate abnormal [Unknown]
  - Drug level decreased [Recovered/Resolved]
  - Drooling [Not Recovered/Not Resolved]
  - Screaming [Unknown]
  - Blood electrolytes abnormal [Recovered/Resolved]
  - Loss of consciousness [Unknown]
  - Drug interaction [Recovered/Resolved]

NARRATIVE: CASE EVENT DATE: 2017
